FAERS Safety Report 5198476-8 (Version None)
Quarter: 2006Q4

REPORT INFORMATION
  Report Type: 
  Country: None (occurrence: None)
  Receive Date: 20061229
  Receipt Date: 20061218
  Transmission Date: 20070319
  Serious: Yes (Hospitalization, Other)
  Sender: FDA-Public Use
  Company Number: 2006BI018585

PATIENT
  Age: 52 Year
  Sex: Female

DRUGS (3)
  1. AVONEX [Suspect]
     Indication: MULTIPLE SCLEROSIS
     Dosage: 30 UG;QW; IM
     Route: 030
  2. AVONEX [Suspect]
     Indication: MULTIPLE SCLEROSIS
     Dosage: 30 UG; QW; IM
     Route: 030
  3. LIPITOR [Concomitant]

REACTIONS (7)
  - CONDITION AGGRAVATED [None]
  - CYSTITIS [None]
  - HAEMATOCRIT DECREASED [None]
  - HYPOAESTHESIA [None]
  - INCOHERENT [None]
  - KIDNEY INFECTION [None]
  - MULTIPLE SCLEROSIS [None]
